FAERS Safety Report 8789534 (Version 1)
Quarter: 2012Q4

REPORT INFORMATION
  Report Type: Spontaneous
  Country: US (occurrence: None)
  Receive Date: 20120910
  Receipt Date: 20120910
  Transmission Date: 20130627
  Serious: No
  Sender: FDA-Public Use
  Company Number: None

PATIENT
  Age: 43 Year
  Sex: Female
  Weight: 63.5 kg

DRUGS (1)
  1. MIRENA [Suspect]
     Indication: BIRTH CONTROL
     Dates: start: 20110310, end: 20120901

REACTIONS (8)
  - Seborrhoeic dermatitis [None]
  - Alopecia [None]
  - Urticaria [None]
  - Vision blurred [None]
  - Abdominal pain [None]
  - Myalgia [None]
  - Arthralgia [None]
  - Headache [None]
